FAERS Safety Report 25099982 (Version 1)
Quarter: 2025Q1

REPORT INFORMATION
  Report Type: Spontaneous
  Country: US (occurrence: US)
  Receive Date: 20250320
  Receipt Date: 20250320
  Transmission Date: 20250409
  Serious: No
  Sender: SANOFI AVENTIS
  Company Number: US-SA-2025SA080110

PATIENT
  Age: 32 Year
  Sex: Female

DRUGS (23)
  1. DUPIXENT [Suspect]
     Active Substance: DUPILUMAB
     Indication: Nasal polyps
     Dosage: 300 MG, QOW
     Route: 058
     Dates: start: 20241210
  2. ALAHIST CF [Concomitant]
     Active Substance: DEXBROMPHENIRAMINE MALEATE\DEXTROMETHORPHAN HYDROBROMIDE\PHENYLEPHRINE HYDROCHLORIDE
  3. ALBUTEROL SULFATE [Concomitant]
     Active Substance: ALBUTEROL SULFATE
  4. AZITHROMYCIN [Concomitant]
     Active Substance: AZITHROMYCIN
  5. BUDESONIDE [Concomitant]
     Active Substance: BUDESONIDE
  6. CLONAZEPAM [Concomitant]
     Active Substance: CLONAZEPAM
  7. DOXEPIN HYDROCHLORIDE [Concomitant]
     Active Substance: DOXEPIN HYDROCHLORIDE
  8. EPINEPHRINE [Concomitant]
     Active Substance: EPINEPHRINE
  9. FLUTICASONE [Concomitant]
     Active Substance: FLUTICASONE
  10. FLUTICASONE [Concomitant]
     Active Substance: FLUTICASONE
  11. GABAPENTIN [Concomitant]
     Active Substance: GABAPENTIN
  12. HYDROCHLOROTHIAZIDE [Concomitant]
     Active Substance: HYDROCHLOROTHIAZIDE
  13. IPRATROPIUM [Concomitant]
     Active Substance: IPRATROPIUM
  14. METHYLPREDNISOLONE [Concomitant]
     Active Substance: METHYLPREDNISOLONE
  15. ONDANSETRON [Concomitant]
     Active Substance: ONDANSETRON
  16. ACETAMINOPHEN\OXYCODONE HYDROCHLORIDE [Concomitant]
     Active Substance: ACETAMINOPHEN\OXYCODONE HYDROCHLORIDE
  17. OZEMPIC [Concomitant]
     Active Substance: SEMAGLUTIDE
  18. Poly hist forte [Concomitant]
  19. PREDNISONE [Concomitant]
     Active Substance: PREDNISONE
  20. RYVENT [Concomitant]
     Active Substance: CARBINOXAMINE MALEATE
  21. TRAZODONE [Concomitant]
     Active Substance: TRAZODONE HYDROCHLORIDE
  22. VITAMIN D [Concomitant]
     Active Substance: VITAMIN D NOS
  23. XHANCE [Concomitant]
     Active Substance: FLUTICASONE PROPIONATE

REACTIONS (2)
  - Drug ineffective [Unknown]
  - Impaired quality of life [Unknown]
